FAERS Safety Report 17495312 (Version 1)
Quarter: 2020Q1

REPORT INFORMATION
  Report Type: Spontaneous
  Country: CL (occurrence: CL)
  Receive Date: 20200303
  Receipt Date: 20200303
  Transmission Date: 20200409
  Serious: Yes (Disabling)
  Sender: FDA-Public Use
  Company Number: None

PATIENT
  Age: 34 Year
  Sex: Female
  Weight: 65 kg

DRUGS (1)
  1. METRONIDAZOLE 500 MG [Suspect]
     Active Substance: METRONIDAZOLE

REACTIONS (6)
  - Vulvovaginal discomfort [None]
  - Vulvovaginal inflammation [None]
  - Hypersensitivity [None]
  - Vulvovaginal pruritus [None]
  - Pelvic inflammatory disease [None]
  - Vulvovaginal pain [None]

NARRATIVE: CASE EVENT DATE: 20130115
